FAERS Safety Report 16991922 (Version 1)
Quarter: 2019Q4

REPORT INFORMATION
  Report Type: Spontaneous
  Country: US (occurrence: US)
  Receive Date: 20190921
  Receipt Date: 20190921
  Transmission Date: 20200122
  Serious: No
  Sender: FDA-Public Use
  Company Number: None

PATIENT
  Age: 37 Year
  Sex: Male

DRUGS (1)
  1. HUMIRA [Suspect]
     Active Substance: ADALIMUMAB
     Indication: COLITIS ULCERATIVE
     Dosage: ?          OTHER FREQUENCY:EVERY14DAYS;?
     Route: 058
     Dates: start: 20190603

REACTIONS (2)
  - Injection site erythema [None]
  - Injection site pruritus [None]

NARRATIVE: CASE EVENT DATE: 201906
